FAERS Safety Report 8282763-0 (Version None)
Quarter: 2012Q2

REPORT INFORMATION
  Report Type: 
  Country: None (occurrence: None)
  Receive Date: 20120413
  Receipt Date: 20120403
  Transmission Date: 20120825
  Serious: Yes (Other)
  Sender: FDA-Public Use
  Company Number: FR-ROCHE-1057916

PATIENT
  Age: 25 Year
  Sex: Female

DRUGS (8)
  1. FLUTICASONE PROPIONATE/SALMETEROL [Concomitant]
  2. VENTOLIN [Concomitant]
  3. XOLAIR [Suspect]
     Indication: ASTHMA
     Dates: start: 20120227
  4. SINGULAIR [Concomitant]
  5. RHINOCORT [Concomitant]
  6. XOLAIR [Suspect]
     Dates: start: 20120326
  7. XOLAIR [Suspect]
     Dates: start: 20120312
  8. DESLORATADINE [Concomitant]

REACTIONS (2)
  - ABDOMINAL PAIN [None]
  - INJECTION SITE ERYTHEMA [None]
